FAERS Safety Report 8624621-5 (Version None)
Quarter: 2012Q3

REPORT INFORMATION
  Report Type: 
  Country: None (occurrence: None)
  Receive Date: 20120827
  Receipt Date: 20120821
  Transmission Date: 20120928
  Serious: Yes (Other)
  Sender: FDA-Public Use
  Company Number: US-PFIZER INC-2012205126

PATIENT
  Sex: Female

DRUGS (2)
  1. ZOLOFT [Suspect]
     Indication: DEPRESSION
     Dosage: 5 MG, 1X/DAY
     Route: 048
     Dates: start: 20120301, end: 20120101
  2. ZOLOFT [Suspect]
     Indication: ANXIETY

REACTIONS (3)
  - TREMOR [None]
  - HALLUCINATION [None]
  - DRUG DEPENDENCE [None]
